FAERS Safety Report 18009406 (Version 1)
Quarter: 2020Q3

REPORT INFORMATION
  Report Type: Report from Study
  Country: GB (occurrence: GB)
  Receive Date: 20200710
  Receipt Date: 20200710
  Transmission Date: 20201103
  Serious: Yes (Other)
  Sender: FDA-Public Use
  Company Number: GB-JNJFOC-20200701377

PATIENT
  Sex: Male

DRUGS (5)
  1. COCODAMOL [Concomitant]
     Active Substance: ACETAMINOPHEN\CODEINE PHOSPHATE
     Dates: start: 20150401
  2. METFORMIN [Concomitant]
     Active Substance: METFORMIN HYDROCHLORIDE
     Dates: start: 20120201
  3. NAPROXEN. [Concomitant]
     Active Substance: NAPROXEN
     Dates: start: 20150401
  4. USTEKINUMAB [Suspect]
     Active Substance: USTEKINUMAB
     Indication: PSORIASIS
     Route: 058
     Dates: start: 20170130, end: 20180920
  5. GLICLAZIDE [Concomitant]
     Active Substance: GLICLAZIDE
     Dates: start: 20120201

REACTIONS (2)
  - Squamous cell carcinoma [Recovered/Resolved]
  - Actinic keratosis [Recovered/Resolved]

NARRATIVE: CASE EVENT DATE: 20180308
